FAERS Safety Report 7933630-0 (Version None)
Quarter: 2011Q4

REPORT INFORMATION
  Report Type: 
  Country: None (occurrence: None)
  Receive Date: 20111122
  Receipt Date: 20111109
  Transmission Date: 20120403
  Serious: Yes (Other)
  Sender: FDA-Public Use
  Company Number: PHHY2011AR099201

PATIENT
  Age: 88 Year
  Sex: Female

DRUGS (4)
  1. ATENOLOL [Concomitant]
  2. AMIODARONE HCL [Concomitant]
  3. DIOVAN [Suspect]
     Indication: HYPERTENSION
     Dosage: 160 MG, UNK
     Dates: end: 20110901
  4. EXFORGE [Suspect]
     Dosage: 1 DF, (160/5MG) DAILY
     Dates: start: 20110901

REACTIONS (2)
  - VARICOSE ULCERATION [None]
  - OEDEMA PERIPHERAL [None]
